FAERS Safety Report 9546112 (Version 1)
Quarter: 2013Q3

REPORT INFORMATION
  Report Type: Spontaneous
  Country: US (occurrence: US)
  Receive Date: 20130923
  Receipt Date: 20130923
  Transmission Date: 20140515
  Serious: No
  Sender: FDA-Public Use
  Company Number: US-GLAXOSMITHKLINE-A1019422A

PATIENT
  Age: 19 Year
  Sex: Male

DRUGS (1)
  1. ABREVA [Suspect]
     Indication: ORAL HERPES

REACTIONS (5)
  - Lip swelling [Not Recovered/Not Resolved]
  - Hypersensitivity [Not Recovered/Not Resolved]
  - Lip oedema [Not Recovered/Not Resolved]
  - Lip pain [Recovered/Resolved]
  - Drug administration error [Unknown]
